FAERS Safety Report 8738580 (Version 2)
Quarter: 2012Q4

REPORT INFORMATION
  Report Type: 
  Country: AU (occurrence: AU)
  Receive Date: 20120823
  Receipt Date: 20120831
  Transmission Date: 20130627
  Serious: Yes (Other)
  Sender: FDA-Public Use
  Company Number: PHHY2012AU072228

PATIENT
  Sex: Female

DRUGS (7)
  1. ACLASTA [Suspect]
     Indication: OSTEOPOROSIS
     Dosage: 5 mg once yearly
     Route: 042
     Dates: start: 20091016
  2. ACLASTA [Suspect]
     Dosage: 5 mg once yearly
     Route: 042
     Dates: start: 20100925
  3. ACLASTA [Suspect]
     Dosage: 5 mg once yearly
     Route: 042
     Dates: start: 20110927
  4. COVERSYL [Concomitant]
     Indication: HYPERTENSION
  5. LIPITOR [Concomitant]
     Indication: HYPERLIPIDAEMIA
  6. OROXINE [Concomitant]
     Indication: HYPOTHYROIDISM
  7. MOBIC [Concomitant]
     Indication: OSTEOARTHRITIS

REACTIONS (3)
  - Osteonecrosis of jaw [Not Recovered/Not Resolved]
  - Gingival infection [Not Recovered/Not Resolved]
  - Exposed bone in jaw [Not Recovered/Not Resolved]
